FAERS Safety Report 24895657 (Version 2)
Quarter: 2025Q1

REPORT INFORMATION
  Report Type: Report from Study
  Country: IT (occurrence: IT)
  Receive Date: 20250128
  Receipt Date: 20250205
  Transmission Date: 20250409
  Serious: Yes (Life-Threatening, Other)
  Sender: PFIZER
  Company Number: IT-PFIZER INC-PV202500009942

PATIENT
  Sex: Male
  Weight: 0.55 kg

DRUGS (6)
  1. MEROPENEM [Suspect]
     Active Substance: MEROPENEM
     Indication: Enterobacter infection
  2. MEROPENEM [Suspect]
     Active Substance: MEROPENEM
  3. TIGECYCLINE [Suspect]
     Active Substance: TIGECYCLINE
     Indication: Enterobacter infection
  4. AMIKACIN [Suspect]
     Active Substance: AMIKACIN
     Indication: Enterobacter infection
  5. PENTAGLOBIN [Suspect]
     Active Substance: HUMAN IMMUNOGLOBULIN G
     Indication: Enterobacter infection
     Dosage: 250 MG/KG, DAILY
     Route: 042
  6. GENTAMICIN SULFATE [Suspect]
     Active Substance: GENTAMICIN SULFATE
     Indication: Enterobacter infection

REACTIONS (2)
  - Drug ineffective [Recovering/Resolving]
  - Respiratory distress [Recovering/Resolving]
